FAERS Safety Report 8468783 (Version 4)
Quarter: 2014Q1

REPORT INFORMATION
  Report Type: Spontaneous
  Country: US (occurrence: US)
  Receive Date: 20120321
  Receipt Date: 20140218
  Transmission Date: 20141002
  Serious: Yes (Disabling, Other)
  Sender: FDA-Public Use
  Company Number: US-ASTRAZENECA-2011SE32240

PATIENT
  Age: 50 Year
  Sex: Female

DRUGS (53)
  1. NEXIUM [Suspect]
     Indication: GASTROOESOPHAGEAL REFLUX DISEASE
     Route: 048
     Dates: start: 2001
  2. NEXIUM [Suspect]
     Indication: GASTROOESOPHAGEAL REFLUX DISEASE
     Route: 048
     Dates: start: 20040130
  3. NEXIUM [Suspect]
     Indication: DYSPEPSIA
     Route: 048
     Dates: start: 20040130
  4. NEXIUM [Suspect]
     Indication: GASTROOESOPHAGEAL REFLUX DISEASE
     Route: 048
     Dates: start: 20040130
  5. NEXIUM [Suspect]
     Indication: GASTROOESOPHAGEAL REFLUX DISEASE
     Route: 048
     Dates: start: 20050118
  6. NEXIUM [Suspect]
     Indication: DYSPEPSIA
     Route: 048
     Dates: start: 20050118
  7. NEXIUM [Suspect]
     Indication: GASTROOESOPHAGEAL REFLUX DISEASE
     Route: 048
     Dates: start: 20050118
  8. NEXIUM [Suspect]
     Indication: GASTROOESOPHAGEAL REFLUX DISEASE
     Dosage: 40 MG ONCE PER DAY
     Route: 048
     Dates: start: 20110806
  9. NEXIUM [Suspect]
     Indication: DYSPEPSIA
     Dosage: 40 MG ONCE PER DAY
     Route: 048
     Dates: start: 20110806
  10. NEXIUM [Suspect]
     Indication: GASTROOESOPHAGEAL REFLUX DISEASE
     Dosage: 40 MG ONCE PER DAY
     Route: 048
     Dates: start: 20110806
  11. PRILOSEC [Suspect]
     Route: 048
  12. PRILOSEC OTC [Concomitant]
     Indication: GASTROOESOPHAGEAL REFLUX DISEASE
     Route: 048
  13. CRESTOR [Concomitant]
     Route: 048
  14. PREVACID OTC [Concomitant]
  15. PEPCID [Concomitant]
  16. TUMS [Concomitant]
     Indication: GASTROOESOPHAGEAL REFLUX DISEASE
     Dosage: EVERY DAY SEVERAL TIMES DAY
  17. TUMS [Concomitant]
     Indication: DYSPEPSIA
     Dosage: EVERY DAY SEVERAL TIMES DAY
  18. ASACOL [Concomitant]
     Indication: COLITIS ULCERATIVE
  19. ASACOL [Concomitant]
     Indication: COLITIS ULCERATIVE
     Dates: start: 20041228
  20. DIOVAN [Concomitant]
     Indication: BLOOD PRESSURE ABNORMAL
  21. VIVELLE DOT [Concomitant]
     Indication: HORMONE REPLACEMENT THERAPY
  22. PROMETRIUM [Concomitant]
     Indication: HORMONE REPLACEMENT THERAPY
  23. LYRICA [Concomitant]
     Indication: NEURALGIA
  24. SERZONE [Concomitant]
     Indication: DEPRESSION
     Dates: start: 20041231
  25. SERZONE [Concomitant]
     Indication: ANXIETY
     Dates: start: 20041231
  26. WELLBUTRIN [Concomitant]
     Indication: DEPRESSION
  27. WELLBUTRIN [Concomitant]
     Indication: ANXIETY
  28. SAVELLA [Concomitant]
     Indication: FIBROMYALGIA
  29. SAVELLA [Concomitant]
     Indication: DEPRESSION
  30. LUNESTA [Concomitant]
     Indication: SLEEP DISORDER
  31. XANAX [Concomitant]
     Indication: DEPRESSION
     Dates: start: 20041231
  32. XANAX [Concomitant]
     Indication: ANXIETY
     Dates: start: 20041231
  33. NUVIGIL [Concomitant]
     Indication: DEPRESSED LEVEL OF CONSCIOUSNESS
  34. CALCIUM WITH VIT D [Concomitant]
     Indication: BONE DISORDER
  35. MULTI VITAMIN [Concomitant]
  36. MELATONIN [Concomitant]
     Indication: SLEEP DISORDER
  37. CARVEDILOL [Concomitant]
  38. CYANOCOBALAM [Concomitant]
     Dosage: 1000 MGC
  39. AMOXICILLIN [Concomitant]
  40. CEPHALEXIN [Concomitant]
  41. CYMBALTA [Concomitant]
     Dates: start: 20041222
  42. CYMBALTA [Concomitant]
     Dates: start: 20050104
  43. TROPAMAX [Concomitant]
  44. LIMICTAL [Concomitant]
  45. HYOSCYAMINE [Concomitant]
     Dates: start: 20041228
  46. AMBIEN [Concomitant]
     Dates: start: 20050205
  47. MILK OF MAGNESIA [Concomitant]
  48. CELEBREX [Concomitant]
     Dates: start: 20031224
  49. ULTRACET [Concomitant]
     Dates: start: 20031224
  50. NEFAZODONE [Concomitant]
     Dates: start: 20031028
  51. EFFEXOR [Concomitant]
     Dates: start: 20030709
  52. NEXIUM [Suspect]
     Indication: GASTROOESOPHAGEAL REFLUX DISEASE
     Route: 048
     Dates: start: 2001
  53. NEXIUM [Suspect]
     Indication: DYSPEPSIA
     Route: 048
     Dates: start: 2001

REACTIONS (6)
  - Foot fracture [Unknown]
  - Depression [Unknown]
  - Osteoporosis [Unknown]
  - Anxiety [Unknown]
  - Multiple fractures [Unknown]
  - Emotional distress [Unknown]
